FAERS Safety Report 23515375 (Version 4)
Quarter: 2024Q2

REPORT INFORMATION
  Report Type: Spontaneous
  Country: JP (occurrence: JP)
  Receive Date: 20240213
  Receipt Date: 20240407
  Transmission Date: 20240716
  Serious: Yes (Hospitalization, Other)
  Sender: FDA-Public Use
  Company Number: JP-BRISTOL-MYERS SQUIBB COMPANY-2024-018466

PATIENT
  Age: 76 Year
  Sex: Male
  Weight: 82 kg

DRUGS (18)
  1. YERVOY [Suspect]
     Active Substance: IPILIMUMAB
     Indication: Oesophageal carcinoma
     Dosage: TWICE
     Route: 041
     Dates: start: 20230524, end: 20230524
  2. YERVOY [Suspect]
     Active Substance: IPILIMUMAB
     Dosage: TWICE
     Route: 041
     Dates: start: 202306
  3. OPDIVO [Suspect]
     Active Substance: NIVOLUMAB
     Indication: Oesophageal carcinoma
     Dosage: TWICE
     Route: 041
     Dates: start: 20230524, end: 20230614
  4. PEMETREXED [Suspect]
     Active Substance: PEMETREXED
     Indication: Oesophageal carcinoma
     Dosage: 3 TIMES
     Dates: start: 202308
  5. PEMETREXED [Suspect]
     Active Substance: PEMETREXED
     Dosage: FIRST WEEK OF SEP
     Dates: start: 202309
  6. PEMETREXED [Suspect]
     Active Substance: PEMETREXED
     Dosage: 3 TIMES, SECOND WEEK OF SEP
     Dates: start: 202309
  7. VONOPRAZAN FUMARATE [Concomitant]
     Active Substance: VONOPRAZAN FUMARATE
     Indication: Product used for unknown indication
  8. TOVIAZ [Concomitant]
     Active Substance: FESOTERODINE FUMARATE
     Indication: Product used for unknown indication
  9. MICARDIS [Concomitant]
     Active Substance: TELMISARTAN
     Indication: Product used for unknown indication
  10. LEVOTHYROXINE [Concomitant]
     Active Substance: LEVOTHYROXINE\LEVOTHYROXINE SODIUM
     Indication: Product used for unknown indication
     Dosage: THYRADIN-S TABLETS25?G 1TABLETS/DAY AFTER BREAKFAST, THYRADIN-S TABLETS50?G 2TABLETS/DAY AFTER BREAK
     Dates: start: 20160823
  11. BISACODYL [Concomitant]
     Active Substance: BISACODYL
     Indication: Product used for unknown indication
  12. AMLODIPINE [Concomitant]
     Active Substance: AMLODIPINE BESYLATE
     Indication: Product used for unknown indication
     Dates: start: 20190624
  13. MAGNESIUM [Concomitant]
     Active Substance: MAGNESIUM
     Indication: Product used for unknown indication
     Dates: start: 20220209
  14. PANTETHINE [Concomitant]
     Active Substance: PANTETHINE
     Indication: Product used for unknown indication
  15. METHYLCOBALAMIN [Concomitant]
     Active Substance: METHYLCOBALAMIN
     Indication: Product used for unknown indication
     Dates: start: 20220114
  16. LIMAPROST [Concomitant]
     Active Substance: LIMAPROST
     Indication: Product used for unknown indication
     Dates: start: 20220511
  17. PREGABALIN [Concomitant]
     Active Substance: PREGABALIN
     Indication: Product used for unknown indication
     Dates: start: 20230207
  18. FLAVOXATE [Concomitant]
     Active Substance: FLAVOXATE
     Indication: Product used for unknown indication

REACTIONS (3)
  - Aplasia pure red cell [Recovering/Resolving]
  - Interstitial lung disease [Recovering/Resolving]
  - Oesophageal carcinoma recurrent [Unknown]

NARRATIVE: CASE EVENT DATE: 20230705
